FAERS Safety Report 5925097-9 (Version None)
Quarter: 2008Q4

REPORT INFORMATION
  Report Type: 
  Country: None (occurrence: None)
  Receive Date: 20081021
  Receipt Date: 20081015
  Transmission Date: 20090506
  Serious: Yes (Hospitalization)
  Sender: FDA-Public Use
  Company Number: AU-JNJFOC-20081003701

PATIENT
  Age: 38 Year
  Sex: Male

DRUGS (7)
  1. DOXORUBICIN HCL [Suspect]
     Indication: GLIOBLASTOMA MULTIFORME
     Route: 042
  2. TEMOZOLOMIDE [Suspect]
     Indication: GLIOBLASTOMA MULTIFORME
     Route: 048
  3. DEXAMETHASONE [Concomitant]
     Indication: OEDEMA
     Route: 065
  4. SOMAC [Concomitant]
     Indication: GASTROINTESTINAL DISORDER THERAPY
     Dosage: COMMENCED BEFORE JUN-2008
     Route: 065
  5. KEPPRA [Concomitant]
     Indication: CONVULSION PROPHYLAXIS
     Dosage: COMMENCED BEFORE JUN-2008
     Route: 065
  6. EPILIM [Concomitant]
     Indication: CONVULSION PROPHYLAXIS
     Dosage: COMMENCED BEFORE JUN-2008
     Route: 065
  7. ONDANSETRON [Concomitant]
     Indication: PROPHYLAXIS OF NAUSEA AND VOMITING
     Route: 065

REACTIONS (5)
  - COUGH [None]
  - DYSPHASIA [None]
  - FEBRILE NEUTROPENIA [None]
  - HEADACHE [None]
  - TACHYCARDIA [None]
